FAERS Safety Report 11991024 (Version 1)
Quarter: 2016Q1

REPORT INFORMATION
  Report Type: Spontaneous
  Country: NL (occurrence: NL)
  Receive Date: 20160202
  Receipt Date: 20160202
  Transmission Date: 20160526
  Serious: Yes (Hospitalization)
  Sender: FDA-Public Use
  Company Number: NL-ASTRAZENECA-2016SE09175

PATIENT
  Age: 20281 Day
  Sex: Male
  Weight: 80 kg

DRUGS (5)
  1. SEROQUEL XR [Interacting]
     Active Substance: QUETIAPINE FUMARATE
     Indication: AGITATED DEPRESSION
     Route: 048
     Dates: start: 20160107
  2. SEROQUEL XR [Interacting]
     Active Substance: QUETIAPINE FUMARATE
     Indication: AGITATED DEPRESSION
     Dosage: DOSE REDUCED
     Route: 048
  3. LEXAPRO [Interacting]
     Active Substance: ESCITALOPRAM OXALATE
     Indication: AGITATED DEPRESSION
     Route: 048
     Dates: start: 20160107
  4. SEROQUEL XR [Suspect]
     Active Substance: QUETIAPINE FUMARATE
     Indication: AGITATED DEPRESSION
     Route: 048
  5. LEXAPRO [Interacting]
     Active Substance: ESCITALOPRAM OXALATE
     Indication: AGITATED DEPRESSION
     Route: 048

REACTIONS (2)
  - Drug interaction [Unknown]
  - Pulmonary embolism [Recovering/Resolving]

NARRATIVE: CASE EVENT DATE: 20160110
